FAERS Safety Report 4968001-2 (Version None)
Quarter: 2006Q2

REPORT INFORMATION
  Report Type: 
  Country: None (occurrence: None)
  Receive Date: 20060403
  Receipt Date: 20060318
  Transmission Date: 20061013
  Serious: Yes (Other)
  Sender: FDA-Public Use
  Company Number: 2006038578

PATIENT
  Sex: Female

DRUGS (5)
  1. VFEND [Suspect]
     Indication: ASPERGILLOSIS
     Dosage: 400 MG (200 MG, 2 IN 1 D), UNKNOWN
     Route: 065
     Dates: start: 20060101
  2. BENADRYL [Suspect]
     Indication: HYPERSENSITIVITY
     Dosage: UNKNOWN
     Route: 065
  3. AMPHOTERICIN B [Suspect]
     Indication: ASPERGILLOSIS
     Dosage: UNKNOWN
     Route: 065
  4. NEXIUM [Suspect]
     Indication: GASTROOESOPHAGEAL REFLUX DISEASE
     Dosage: 40 MG (40 MG, DAILY INTERVAL : EVERY DAY), UNKNOWN
     Route: 065
     Dates: end: 20060301
  5. ALBUTEROL [Suspect]
     Indication: ILL-DEFINED DISORDER
     Dosage: UNKNOWN, INHALATION
     Route: 055

REACTIONS (21)
  - ASPERGILLOSIS [None]
  - ASTHMA [None]
  - BLOOD IMMUNOGLOBULIN E INCREASED [None]
  - CHOKING [None]
  - COUGH [None]
  - CREPITATIONS [None]
  - FUNGAL INFECTION [None]
  - HEART RATE INCREASED [None]
  - HYPERSENSITIVITY [None]
  - INSOMNIA [None]
  - LUNG DISORDER [None]
  - MYOCARDIAL INFARCTION [None]
  - NERVOUSNESS [None]
  - NO REACTION ON PREVIOUS EXPOSURE TO DRUG [None]
  - PAIN IN EXTREMITY [None]
  - PENICILLIOSIS [None]
  - RESPIRATORY DISTRESS [None]
  - SINUSITIS FUNGAL [None]
  - SOMNOLENCE [None]
  - STRESS [None]
  - THERAPY NON-RESPONDER [None]
